FAERS Safety Report 4871494-2 (Version None)
Quarter: 2005Q4

REPORT INFORMATION
  Report Type: 
  Country: None (occurrence: None)
  Receive Date: 20051229
  Receipt Date: 20051219
  Transmission Date: 20060501
  Serious: Yes (Death)
  Sender: FDA-Public Use
  Company Number: USA-2005-0021959

PATIENT
  Age: 62 Year
  Sex: Female
  Weight: 50.3 kg

DRUGS (14)
  1. OXYCONTIN [Suspect]
     Indication: PAIN
     Dosage: 40 MG , Q12H, ORAL
     Route: 048
  2. TRAZODONE (TRAZODONE) [Suspect]
  3. GABAPENTIN [Suspect]
  4. LIDOCAINE [Suspect]
  5. OXYMORPHONE HYDROCHLORIDE [Suspect]
  6. HYDROXYZINE [Suspect]
  7. CETIRIZINE (CETIRIZINE) [Suspect]
  8. BUPROPION (AMFEBUTAMONE) [Suspect]
  9. VASOTEC [Concomitant]
  10. PROCARDIA [Concomitant]
  11. SINGULAIR [Concomitant]
  12. PROVENTIL [Concomitant]
  13. AZMACORT [Concomitant]
  14. PULMICORT [Concomitant]

REACTIONS (18)
  - ACCIDENTAL DEATH [None]
  - ACCIDENTAL OVERDOSE [None]
  - ARTERIOSCLEROSIS [None]
  - CHOLELITHIASIS [None]
  - CHRONIC OBSTRUCTIVE PULMONARY DISEASE [None]
  - CORONARY ARTERY DISEASE [None]
  - DRUG SCREEN POSITIVE [None]
  - EXCORIATION [None]
  - HEAD INJURY [None]
  - HEPATIC CONGESTION [None]
  - HYSTERECTOMY [None]
  - INCORRECT DOSE ADMINISTERED [None]
  - INGUINAL HERNIA REPAIR [None]
  - MEMORY IMPAIRMENT [None]
  - NEPHROSCLEROSIS [None]
  - PANCREAS LIPOMATOSIS [None]
  - SALPINGO-OOPHORECTOMY [None]
  - STUPOR [None]
